FAERS Safety Report 4435608-0 (Version None)
Quarter: 2004Q3

REPORT INFORMATION
  Report Type: 
  Country: None (occurrence: None)
  Receive Date: 20040726
  Receipt Date: 20040511
  Transmission Date: 20050211
  Serious: No
  Sender: FDA-Public Use
  Company Number: USA040566618

PATIENT
  Age: 76 Year
  Sex: Male
  Weight: 75 kg

DRUGS (9)
  1. FORTEO [Suspect]
     Indication: OSTEOPOROSIS
     Dosage: 20 UG/1 DAY
     Dates: start: 20040401
  2. NEXIUM [Concomitant]
  3. NORVASC [Concomitant]
  4. MOBIC [Concomitant]
  5. MULTIVITAMIN [Concomitant]
  6. VITAMIN E [Concomitant]
  7. ZINC [Concomitant]
  8. BENADRYL [Concomitant]
  9. ZANTAC [Concomitant]

REACTIONS (2)
  - CONSTIPATION [None]
  - DYSGEUSIA [None]
